FAERS Safety Report 14893731 (Version 1)
Quarter: 2018Q2

REPORT INFORMATION
  Report Type: Spontaneous
  Country: JP (occurrence: JP)
  Receive Date: 20180514
  Receipt Date: 20180514
  Transmission Date: 20180711
  Serious: Yes (Death)
  Sender: FDA-Public Use
  Company Number: PHHY2018JP070159

PATIENT
  Age: 54 Year
  Sex: Female
  Weight: 47.3 kg

DRUGS (1)
  1. VANCOMYCIN HYDROCHLORIDE. [Suspect]
     Active Substance: VANCOMYCIN HYDROCHLORIDE
     Indication: CORYNEBACTERIUM INFECTION
     Dosage: UNK
     Route: 065

REACTIONS (1)
  - Therapeutic response decreased [Fatal]
